FAERS Safety Report 15295579 (Version 1)
Quarter: 2018Q3

REPORT INFORMATION
  Report Type: Spontaneous
  Country: US (occurrence: US)
  Receive Date: 20180820
  Receipt Date: 20180820
  Transmission Date: 20181010
  Serious: No
  Sender: FDA-Public Use
  Company Number: US-MYLANLABS-2018M1060188

PATIENT
  Sex: Female

DRUGS (1)
  1. BUPROPION. [Suspect]
     Active Substance: BUPROPION
     Indication: PRODUCT USED FOR UNKNOWN INDICATION
     Dosage: UNK
     Route: 065

REACTIONS (8)
  - Peripheral swelling [Unknown]
  - Depressed mood [Unknown]
  - Migraine [Unknown]
  - Nausea [Unknown]
  - Thinking abnormal [Unknown]
  - Appetite disorder [Unknown]
  - Illogical thinking [Unknown]
  - Dizziness [Unknown]
